FAERS Safety Report 7534470-7 (Version None)
Quarter: 2011Q2

REPORT INFORMATION
  Report Type: 
  Country: None (occurrence: None)
  Receive Date: 20110608
  Receipt Date: 20110531
  Transmission Date: 20111010
  Serious: Yes (Death, Other)
  Sender: FDA-Public Use
  Company Number: JP-AMGEN-JPNCT2011019476

PATIENT
  Age: 78 Year
  Sex: Male
  Weight: 44 kg

DRUGS (11)
  1. MINOCYCLINE HCL [Concomitant]
     Dosage: UNK
     Route: 048
  2. PANITUMUMAB [Suspect]
     Indication: COLORECTAL CANCER
     Dosage: 6 MG/KG, Q2WK
     Route: 041
     Dates: start: 20101008, end: 20101224
  3. METHYCOBAL [Concomitant]
     Dosage: UNK
     Route: 048
  4. LOXONIN [Concomitant]
     Dosage: UNK
     Route: 048
  5. LEUCOVORIN CALCIUM [Concomitant]
     Indication: COLORECTAL CANCER
     Dosage: 100 MG/M2, UNK
     Route: 041
     Dates: start: 20100716, end: 20101225
  6. FLUOROURACIL [Concomitant]
     Indication: COLORECTAL CANCER
     Route: 040
     Dates: start: 20100716, end: 20101225
  7. FLUOROURACIL [Concomitant]
     Route: 041
     Dates: start: 20100716, end: 20101225
  8. HIRUDOID LOTION [Concomitant]
     Dosage: UNK
     Route: 062
  9. EURAX [Concomitant]
     Dosage: UNK
     Route: 062
  10. OXALIPLATIN [Suspect]
     Indication: COLORECTAL CANCER
     Route: 041
     Dates: start: 20100716, end: 20101225
  11. CORTICOSTEROIDS [Concomitant]
     Indication: PROPHYLAXIS
     Dosage: UNK
     Route: 065

REACTIONS (7)
  - PARONYCHIA [None]
  - CONJUNCTIVITIS [None]
  - STOMATITIS [None]
  - COLORECTAL CANCER [None]
  - DERMATITIS ACNEIFORM [None]
  - DRY SKIN [None]
  - NEUTROPHIL COUNT DECREASED [None]
